FAERS Safety Report 9374462 (Version 2)
Quarter: 2013Q4

REPORT INFORMATION
  Report Type: Spontaneous
  Country: US (occurrence: US)
  Receive Date: 20130628
  Receipt Date: 20131209
  Transmission Date: 20140711
  Serious: Yes (Hospitalization, Other)
  Sender: FDA-Public Use
  Company Number: US-MERCK-1306USA010985

PATIENT
  Age: 76 Year
  Sex: Female

DRUGS (1)
  1. ZOCOR [Suspect]
     Indication: DYSLIPIDAEMIA
     Dosage: 80 MG, QD
     Route: 048

REACTIONS (3)
  - Autoimmune hepatitis [Recovering/Resolving]
  - Antiphospholipid antibodies positive [Unknown]
  - Rhabdomyolysis [Recovering/Resolving]
